FAERS Safety Report 24139359 (Version 2)
Quarter: 2024Q3

REPORT INFORMATION
  Report Type: Spontaneous
  Country: US (occurrence: None)
  Receive Date: 20240726
  Receipt Date: 20240910
  Transmission Date: 20241017
  Serious: No
  Sender: ASTRAZENECA
  Company Number: 2024A166649

PATIENT
  Sex: Female

DRUGS (1)
  1. IMFINZI [Suspect]
     Active Substance: DURVALUMAB
     Route: 042

REACTIONS (7)
  - Feeling abnormal [Unknown]
  - Paraesthesia [Unknown]
  - Tremor [Unknown]
  - Back pain [Unknown]
  - White blood cell count decreased [Unknown]
  - Myalgia [Unknown]
  - Manufacturing product storage issue [Unknown]
